FAERS Safety Report 7087387-9 (Version None)
Quarter: 2010Q4

REPORT INFORMATION
  Report Type: 
  Country: None (occurrence: None)
  Receive Date: 20101108
  Receipt Date: 20101029
  Transmission Date: 20110411
  Serious: Yes (Hospitalization)
  Sender: FDA-Public Use
  Company Number: US-BIOGENIDEC-2010BI038089

PATIENT
  Age: 40 Year
  Sex: Female

DRUGS (2)
  1. AVONEX [Suspect]
     Indication: MULTIPLE SCLEROSIS
     Route: 030
     Dates: start: 20050801
  2. AVONEX [Suspect]
     Route: 030
     Dates: start: 20080616

REACTIONS (2)
  - INTERVERTEBRAL DISC OPERATION [None]
  - ROAD TRAFFIC ACCIDENT [None]
